FAERS Safety Report 12518456 (Version 1)
Quarter: 2016Q2

REPORT INFORMATION
  Report Type: Spontaneous
  Country: CN (occurrence: CN)
  Receive Date: 20160630
  Receipt Date: 20160630
  Transmission Date: 20160815
  Serious: Yes (Other)
  Sender: FDA-Public Use
  Company Number: CN-BAXTER-2016BAX033649

PATIENT
  Age: 56 Year
  Sex: Female

DRUGS (3)
  1. XIYANPING [Suspect]
     Active Substance: HERBALS
     Indication: BACTERAEMIA
     Route: 041
     Dates: start: 20151128, end: 20151129
  2. 0.9% SODIUM CHLORIDE INJECTION [Suspect]
     Active Substance: SODIUM CHLORIDE
     Indication: MEDICATION DILUTION
     Route: 041
     Dates: start: 20151128, end: 20151128
  3. 5% GLUCOSE  INJECTION [Suspect]
     Active Substance: DEXTROSE
     Indication: MEDICATION DILUTION
     Route: 041
     Dates: start: 20151128, end: 20151129

REACTIONS (2)
  - Swollen tongue [Recovering/Resolving]
  - Dyspnoea [Recovering/Resolving]

NARRATIVE: CASE EVENT DATE: 20151128
